FAERS Safety Report 15553123 (Version 1)
Quarter: 2018Q4

REPORT INFORMATION
  Report Type: Spontaneous
  Country: DE (occurrence: DE)
  Receive Date: 20181026
  Receipt Date: 20181026
  Transmission Date: 20190205
  Serious: Yes (Hospitalization, Other)
  Sender: FDA-Public Use
  Company Number: DE-009507513-1810DEU007117

PATIENT
  Age: 53 Year
  Sex: Male
  Weight: 140 kg

DRUGS (4)
  1. MIRTAZAPINE. [Suspect]
     Active Substance: MIRTAZAPINE
     Indication: SLEEP DISORDER
     Dosage: 30 MILLIGRAM
     Route: 048
  2. QUETIAPINE FUMARATE. [Suspect]
     Active Substance: QUETIAPINE FUMARATE
     Indication: SLEEP DISORDER
     Dosage: 25 MILLIGRAM
     Route: 048
     Dates: start: 201702
  3. TRIMIPRAMINE [Suspect]
     Active Substance: TRIMIPRAMINE
     Indication: SLEEP DISORDER
     Dosage: DAILY DOSE: 40 GTT DROP(S) EVERY TOTAL ; IN TOTAL
  4. PIPAMPERONE [Suspect]
     Active Substance: PIPAMPERONE
     Indication: SLEEP DISORDER
     Dosage: 40 MILLIGRAM
     Route: 048
     Dates: start: 201708

REACTIONS (8)
  - Middle insomnia [Unknown]
  - Dependence [Unknown]
  - Temperature regulation disorder [Unknown]
  - Apathy [Unknown]
  - Initial insomnia [Unknown]
  - Weight increased [Unknown]
  - Respiratory disorder [Unknown]
  - Constipation [Unknown]
